FAERS Safety Report 18575573 (Version 1)
Quarter: 2020Q4

REPORT INFORMATION
  Report Type: Spontaneous
  Country: CA (occurrence: CA)
  Receive Date: 20201203
  Receipt Date: 20201203
  Transmission Date: 20210114
  Serious: Yes (Other)
  Sender: FDA-Public Use
  Company Number: CA-SA-2020SA343521

PATIENT

DRUGS (9)
  1. LEFLUNOMIDE. [Suspect]
     Active Substance: LEFLUNOMIDE
     Indication: RHEUMATOID ARTHRITIS
     Dosage: 20 MG, QD
     Route: 065
  2. ABATACEPT [Suspect]
     Active Substance: ABATACEPT
     Indication: RHEUMATOID ARTHRITIS
     Route: 065
  3. SULFASALAZINE. [Suspect]
     Active Substance: SULFASALAZINE
     Indication: ARTHRITIS
     Route: 065
  4. METHOTREXATE. [Suspect]
     Active Substance: METHOTREXATE
     Indication: ARTHRITIS
     Dosage: 25 MG, QW
     Route: 058
  5. CHLOROQUINE. [Concomitant]
     Active Substance: CHLOROQUINE
  6. RITUXIMAB. [Suspect]
     Active Substance: RITUXIMAB
     Indication: RHEUMATOID ARTHRITIS
     Route: 065
  7. PREDNISONE. [Concomitant]
     Active Substance: PREDNISONE
     Dosage: 5 MG, QD
  8. ELIQUIS [Suspect]
     Active Substance: APIXABAN
     Indication: PRODUCT USED FOR UNKNOWN INDICATION
     Route: 065
  9. TOCILIZUMAB. [Suspect]
     Active Substance: TOCILIZUMAB
     Indication: RHEUMATOID ARTHRITIS
     Route: 065

REACTIONS (3)
  - Interstitial lung disease [Unknown]
  - Treatment failure [Unknown]
  - Therapeutic product effect incomplete [Unknown]
